FAERS Safety Report 7325521-3 (Version None)
Quarter: 2011Q1

REPORT INFORMATION
  Report Type: 
  Country: None (occurrence: None)
  Receive Date: 20110302
  Receipt Date: 20110218
  Transmission Date: 20110831
  Serious: Yes (Hospitalization)
  Sender: FDA-Public Use
  Company Number: IT-SANOFI-AVENTIS-2011SA010350

PATIENT
  Age: 53 Year
  Sex: Male

DRUGS (5)
  1. ZERINOL [Suspect]
     Indication: INTENTIONAL SELF-INJURY
     Dosage: DOSE:10 UNIT(S)
     Route: 048
     Dates: start: 20110216, end: 20110216
  2. BRUFEN ^ABBOTT^ [Suspect]
     Indication: INTENTIONAL SELF-INJURY
     Dosage: DOSE:10 UNIT(S)
     Route: 048
     Dates: start: 20110216, end: 20110216
  3. ZOFENOPRIL [Suspect]
     Indication: INTENTIONAL SELF-INJURY
     Dosage: DOSE:15 UNIT(S)
     Route: 048
     Dates: start: 20110216, end: 20110216
  4. COCAINE [Suspect]
     Indication: INTENTIONAL SELF-INJURY
     Route: 065
  5. LASIX [Suspect]
     Indication: INTENTIONAL SELF-INJURY
     Dosage: DOSE:4 UNIT(S)
     Route: 048
     Dates: start: 20110216, end: 20110216

REACTIONS (4)
  - PSYCHOMOTOR RETARDATION [None]
  - MULTIPLE DRUG OVERDOSE INTENTIONAL [None]
  - SOPOR [None]
  - TONGUE OEDEMA [None]
